FAERS Safety Report 9156198 (Version 1)
Quarter: 2013Q1

REPORT INFORMATION
  Report Type: Spontaneous
  Country: US (occurrence: US)
  Receive Date: 20130123
  Receipt Date: 20130123
  Transmission Date: 20140127
  Serious: No
  Sender: FDA-Public Use
  Company Number: US-BRACCO-007957

PATIENT
  Sex: 0

DRUGS (2)
  1. MULTIHANCE [Suspect]
     Indication: DIAGNOSTIC PROCEDURE
  2. MULTIHANCE [Suspect]
     Indication: PRODUCT USED FOR UNKNOWN INDICATION

REACTIONS (3)
  - Epistaxis [Unknown]
  - Vomiting [Unknown]
  - Nausea [Unknown]
